FAERS Safety Report 5048091-1 (Version None)
Quarter: 2006Q3

REPORT INFORMATION
  Report Type: 
  Country: None (occurrence: None)
  Receive Date: 20060705
  Receipt Date: 20060614
  Transmission Date: 20061208
  Serious: Yes (Other)
  Sender: FDA-Public Use
  Company Number: US200606003312

PATIENT
  Sex: Female

DRUGS (4)
  1. HUMULIN N [Suspect]
     Indication: DIABETES MELLITUS
     Dates: start: 20041201, end: 20060605
  2. METFORMIN [Concomitant]
  3. STARLIX [Concomitant]
  4. CORTICOSTEROID NOS (CORTICOSTEROID NOS) [Concomitant]

REACTIONS (7)
  - BACK PAIN [None]
  - BLOOD GLUCOSE INCREASED [None]
  - GLYCOSYLATED HAEMOGLOBIN INCREASED [None]
  - HAEMORRHAGE URINARY TRACT [None]
  - LOSS OF CONSCIOUSNESS [None]
  - RENAL DISORDER [None]
  - ROAD TRAFFIC ACCIDENT [None]
